FAERS Safety Report 5519821-7 (Version None)
Quarter: 2007Q4

REPORT INFORMATION
  Report Type: 
  Country: None (occurrence: None)
  Receive Date: 20071116
  Receipt Date: 20070904
  Transmission Date: 20080405
  Serious: No
  Sender: FDA-Public Use
  Company Number: A0678409A

PATIENT
  Age: 40 Year
  Sex: Female

DRUGS (5)
  1. COREG CR [Suspect]
     Indication: HYPERTENSION
     Dosage: 10MG PER DAY
     Route: 048
     Dates: start: 20070601
  2. ASPIRIN [Suspect]
     Route: 048
  3. MICARDIS [Suspect]
     Indication: HYPERTENSION
     Route: 048
  4. THYROID TAB [Concomitant]
  5. VITAMIN CAP [Concomitant]

REACTIONS (8)
  - CONJUNCTIVITIS INFECTIVE [None]
  - DIZZINESS [None]
  - DYSPNOEA [None]
  - HYPOAESTHESIA [None]
  - LIP SWELLING [None]
  - OEDEMA PERIPHERAL [None]
  - URTICARIA [None]
  - WEIGHT INCREASED [None]
